FAERS Safety Report 8455469-2 (Version None)
Quarter: 2012Q2

REPORT INFORMATION
  Report Type: 
  Country: None (occurrence: None)
  Receive Date: 20120621
  Receipt Date: 20120612
  Transmission Date: 20120825
  Serious: Yes (Life-Threatening)
  Sender: FDA-Public Use
  Company Number: FI-JNJFOC-20120606274

PATIENT
  Sex: Female

DRUGS (7)
  1. REMICADE [Suspect]
     Indication: JUVENILE ARTHRITIS
     Route: 042
     Dates: start: 20111219
  2. REMICADE [Suspect]
     Dosage: 5TH TIME
     Route: 042
     Dates: start: 20120606, end: 20120606
  3. REMICADE [Suspect]
     Route: 042
     Dates: start: 20111219
  4. FOLIC ACID [Concomitant]
     Indication: JUVENILE ARTHRITIS
     Route: 048
  5. SULFASALAZINE [Concomitant]
     Route: 048
     Dates: start: 20111219
  6. REMICADE [Suspect]
     Indication: COLITIS ULCERATIVE
     Dosage: 5TH TIME
     Route: 042
     Dates: start: 20120606, end: 20120606
  7. METHOTREXATE [Concomitant]
     Indication: JUVENILE ARTHRITIS
     Route: 058

REACTIONS (9)
  - NASAL OBSTRUCTION [None]
  - OROPHARYNGEAL DISCOMFORT [None]
  - PRURITUS [None]
  - TREMOR [None]
  - DYSPHONIA [None]
  - BLOOD PRESSURE DECREASED [None]
  - INFUSION RELATED REACTION [None]
  - NAUSEA [None]
  - DYSPNOEA [None]
